FAERS Safety Report 17622329 (Version 1)
Quarter: 2020Q2

REPORT INFORMATION
  Report Type: Spontaneous
  Country: US (occurrence: US)
  Receive Date: 20200403
  Receipt Date: 20200403
  Transmission Date: 20200713
  Serious: Yes (Life-Threatening, Other)
  Sender: FDA-Public Use
  Company Number: NVSC2020US090814

PATIENT
  Age: 47 Year
  Sex: Male

DRUGS (1)
  1. ETANERCEPT [Suspect]
     Active Substance: ETANERCEPT
     Indication: RHEUMATOID ARTHRITIS
     Dosage: UNK
     Route: 065

REACTIONS (7)
  - Sinus tachycardia [Unknown]
  - Atrial fibrillation [Unknown]
  - Cardiogenic shock [Unknown]
  - Palpitations [Unknown]
  - Hypotension [Unknown]
  - Cardiomyopathy [Unknown]
  - Dyspnoea [Unknown]
